FAERS Safety Report 23818837 (Version 2)
Quarter: 2024Q2

REPORT INFORMATION
  Report Type: Other
  Country: TW (occurrence: None)
  Receive Date: 20240506
  Receipt Date: 20240510
  Transmission Date: 20240715
  Serious: Yes (Death)
  Sender: FDA-Public Use
  Company Number: TW-ROCHE-3556721

PATIENT

DRUGS (3)
  1. AVASTIN [Suspect]
     Active Substance: BEVACIZUMAB
     Indication: Colorectal cancer metastatic
     Route: 042
  2. FLUOROURACIL [Suspect]
     Active Substance: FLUOROURACIL
     Indication: Colorectal cancer metastatic
     Route: 042
  3. LEUCOVORIN [Suspect]
     Active Substance: LEUCOVORIN\LEUCOVORIN CALCIUM
     Indication: Colorectal cancer metastatic
     Route: 042

REACTIONS (1)
  - Pulmonary embolism [Fatal]
